FAERS Safety Report 18778480 (Version 2)
Quarter: 2021Q1

REPORT INFORMATION
  Report Type: Report from Study
  Country: US (occurrence: US)
  Receive Date: 20210123
  Receipt Date: 20210319
  Transmission Date: 20210419
  Serious: No
  Sender: FDA-Public Use
  Company Number: NVSC2021US015885

PATIENT
  Sex: Female

DRUGS (1)
  1. COSENTYX [Suspect]
     Active Substance: SECUKINUMAB
     Indication: PSORIASIS
     Dosage: 300 MG, Q4W
     Route: 058

REACTIONS (5)
  - SARS-CoV-2 test positive [Recovering/Resolving]
  - Head discomfort [Recovering/Resolving]
  - Cough [Recovering/Resolving]
  - Psoriasis [Recovering/Resolving]
  - Stress [Recovering/Resolving]
